FAERS Safety Report 21172782 (Version 1)
Quarter: 2022Q3

REPORT INFORMATION
  Report Type: Spontaneous
  Country: US (occurrence: US)
  Receive Date: 20220804
  Receipt Date: 20220804
  Transmission Date: 20221027
  Serious: No
  Sender: FDA-Public Use
  Company Number: US-PFIZER INC-2020241661

PATIENT
  Age: 65 Year
  Sex: Female
  Weight: 68.04 kg

DRUGS (4)
  1. SKELAXIN [Suspect]
     Active Substance: METAXALONE
     Indication: Intervertebral disc degeneration
     Dosage: 800 MG, 3X/DAY
     Route: 048
     Dates: start: 2011
  2. SKELAXIN [Suspect]
     Active Substance: METAXALONE
     Indication: Spondylolisthesis
     Dosage: 800 MG, 1X/DAY (FOR 12 HOURS)
  3. SKELAXIN [Suspect]
     Active Substance: METAXALONE
     Indication: Spinal stenosis
  4. SKELAXIN [Suspect]
     Active Substance: METAXALONE
     Indication: Intervertebral disc displacement

REACTIONS (2)
  - Off label use [Unknown]
  - Inappropriate schedule of product administration [Unknown]
